FAERS Safety Report 23313755 (Version 2)
Quarter: 2023Q4

REPORT INFORMATION
  Report Type: Report from Study
  Country: US (occurrence: US)
  Receive Date: 20231219
  Receipt Date: 20231225
  Transmission Date: 20240110
  Serious: Yes (Hospitalization)
  Sender: FDA-Public Use
  Company Number: US-IDORSIA-007389-2023-US

PATIENT
  Age: 74 Year
  Sex: Female

DRUGS (1)
  1. QUVIVIQ [Suspect]
     Active Substance: DARIDOREXANT
     Indication: Insomnia
     Dosage: 50 MG, QD
     Route: 048
     Dates: start: 202211

REACTIONS (2)
  - Nephrolithiasis [Recovering/Resolving]
  - Kidney infection [Recovered/Resolved]

NARRATIVE: CASE EVENT DATE: 20231113
